FAERS Safety Report 24253430 (Version 1)
Quarter: 2024Q3

REPORT INFORMATION
  Report Type: Other
  Country: US (occurrence: US)
  Receive Date: 20240827
  Receipt Date: 20240827
  Transmission Date: 20241016
  Serious: Yes (Other)
  Sender: B BRAUN
  Company Number: US-B.Braun Medical Inc.-2160905

PATIENT
  Age: 68 Year
  Sex: Male

DRUGS (4)
  1. HEPARIN SODIUM IN DEXTROSE [Suspect]
     Active Substance: HEPARIN SODIUM
     Indication: Thrombosis
  2. OXYGEN [Concomitant]
     Active Substance: OXYGEN
  3. DIGOXIN [Concomitant]
     Active Substance: DIGOXIN
  4. FUROSEMIDE [Concomitant]
     Active Substance: FUROSEMIDE

REACTIONS (1)
  - Drug ineffective [Unknown]
